FAERS Safety Report 8608745-4 (Version None)
Quarter: 2012Q3

REPORT INFORMATION
  Report Type: 
  Country: None (occurrence: None)
  Receive Date: 20120809
  Receipt Date: 20120809
  Transmission Date: 20120928
  Serious: Yes (Disabling)
  Sender: FDA-Public Use
  Company Number: None

PATIENT
  Age: 40 Year
  Sex: Female
  Weight: 55.7924 kg

DRUGS (1)
  1. CIPRO [Suspect]
     Indication: KIDNEY INFECTION
     Dosage: 500MG 2XDAY PO
     Route: 048
     Dates: start: 20120725, end: 20120726

REACTIONS (4)
  - SYNCOPE [None]
  - TENDON PAIN [None]
  - HEART RATE INCREASED [None]
  - NEUROPATHY PERIPHERAL [None]
